FAERS Safety Report 6772181-6 (Version None)
Quarter: 2010Q2

REPORT INFORMATION
  Report Type: 
  Country: None (occurrence: None)
  Receive Date: 20100616
  Receipt Date: 20100607
  Transmission Date: 20101027
  Serious: Yes (Other)
  Sender: FDA-Public Use
  Company Number: PHHY2010ZA37560

PATIENT
  Sex: Female

DRUGS (1)
  1. ACLASTA [Suspect]
     Dosage: 05 MG /100 ML
     Route: 042
     Dates: start: 20100531

REACTIONS (9)
  - ARTHRALGIA [None]
  - CARDIAC FLUTTER [None]
  - COUGH [None]
  - DIARRHOEA [None]
  - DYSPNOEA [None]
  - FEELING COLD [None]
  - GAIT DISTURBANCE [None]
  - JOINT SWELLING [None]
  - MALAISE [None]
